FAERS Safety Report 5286204-7 (Version None)
Quarter: 2007Q2

REPORT INFORMATION
  Report Type: 
  Country: None (occurrence: None)
  Receive Date: 20070403
  Receipt Date: 20070403
  Transmission Date: 20071010
  Serious: Yes (Hospitalization)
  Sender: FDA-Public Use
  Company Number: None

PATIENT
  Age: 63 Year
  Sex: Male
  Weight: 173 kg

DRUGS (2)
  1. CILOSTAZOL [Suspect]
     Indication: ANTICOAGULANT THERAPY
     Dosage: 100MG TWICE DAILY PO
     Route: 048
     Dates: start: 20060522, end: 20070324
  2. CLOPIDOGREL [Suspect]
     Indication: ANTICOAGULANT THERAPY
     Dosage: 75MG ONCE DAILY PO
     Route: 048
     Dates: start: 20050913, end: 20070324

REACTIONS (3)
  - BLOOD PRESSURE ORTHOSTATIC ABNORMAL [None]
  - UPPER GASTROINTESTINAL HAEMORRHAGE [None]
  - VOMITING [None]
